FAERS Safety Report 6033433-0 (Version None)
Quarter: 2009Q1

REPORT INFORMATION
  Report Type: 
  Country: None (occurrence: None)
  Receive Date: 20090109
  Receipt Date: 20081229
  Transmission Date: 20090719
  Serious: Yes (Other)
  Sender: FDA-Public Use
  Company Number: US-B.I. PHARMACEUTICALS,INC./RIDGEFIELD-2007-DE-03480GD

PATIENT
  Age: 27 Year
  Sex: Male

DRUGS (7)
  1. NEVIRAPINE [Suspect]
     Indication: HIV INFECTION
     Dosage: 200MG
  2. NEVIRAPINE [Suspect]
     Dosage: 400MG
  3. EMTRICITABINE [Suspect]
     Indication: HIV INFECTION
     Dosage: 200MG
  4. TENOFOVIR [Suspect]
     Indication: HIV INFECTION
     Dosage: 300MG
  5. OMEPRAZOLE [Concomitant]
  6. DOVONEX [Concomitant]
  7. FLUOCINOLONE ACETONIDE [Concomitant]

REACTIONS (10)
  - ABDOMINAL DISTENSION [None]
  - ABDOMINAL PAIN UPPER [None]
  - ASTHENIA [None]
  - DIARRHOEA [None]
  - DYSPEPSIA [None]
  - EOSINOPHILIA [None]
  - FLATULENCE [None]
  - HEPATIC NECROSIS [None]
  - NODULAR REGENERATIVE HYPERPLASIA [None]
  - PORTAL HYPERTENSION [None]
